FAERS Safety Report 10022385 (Version 1)
Quarter: 2013Q4

REPORT INFORMATION
  Report Type: Spontaneous
  Country: GB (occurrence: None)
  Receive Date: 20131223
  Receipt Date: 20131223
  Transmission Date: 20140711
  Serious: Yes (Other)
  Sender: FDA-Public Use
  Company Number: GB-PMX02-13-00035

PATIENT
  Age: 65 Year
  Sex: Female

DRUGS (4)
  1. OSMOHALE [Suspect]
     Indication: PULMONARY FUNCTION CHALLENGE TEST
     Dosage: 315 MG (TOTAL), RESPIRATORY (INHALATION), 1 DAYS
     Route: 055
     Dates: start: 20130609, end: 20130609
  2. SYMBIOCORT (BUDESONIDE W/FORMOTEROL FUMARATE) (UNKNOWN) (FORMOTERAL FUMARATE, BUDESONIDE)? [Concomitant]
  3. ATROVENT (IPRATROPIUM BROMIDE) (UNKNOWN) (IPRATROPIUM BROMIDE) [Concomitant]
  4. VENTOLIN (SALBUTAMOL SULFATE (UNKNOWN) (SALBUTAMOL SULFATE) [Concomitant]

REACTIONS (1)
  - Oxygen saturation decreased [None]
